FAERS Safety Report 25097155 (Version 1)
Quarter: 2025Q1

REPORT INFORMATION
  Report Type: Spontaneous
  Country: RS (occurrence: RS)
  Receive Date: 20250319
  Receipt Date: 20250319
  Transmission Date: 20250409
  Serious: Yes (Other)
  Sender: JOHNSON AND JOHNSON
  Company Number: RS-JNJFOC-20250335814

PATIENT
  Age: 52 Year
  Sex: Female

DRUGS (1)
  1. RISPERIDONE [Suspect]
     Active Substance: RISPERIDONE
     Indication: Product used for unknown indication
     Route: 065

REACTIONS (7)
  - Suicidal ideation [Unknown]
  - Restlessness [Unknown]
  - Listless [Unknown]
  - Depressed mood [Unknown]
  - Fatigue [Unknown]
  - Insomnia [Unknown]
  - Urinary incontinence [Unknown]
